FAERS Safety Report 14985524 (Version 1)
Quarter: 2018Q2

REPORT INFORMATION
  Report Type: Spontaneous
  Country: DE (occurrence: DE)
  Receive Date: 20180607
  Receipt Date: 20180607
  Transmission Date: 20180711
  Serious: Yes (Hospitalization)
  Sender: FDA-Public Use
  Company Number: DE-ABBVIE-18P-062-2373813-00

PATIENT
  Age: 81 Year
  Sex: Male
  Weight: 105 kg

DRUGS (9)
  1. TORASEMIDE [Concomitant]
     Active Substance: TORSEMIDE
     Indication: PRODUCT USED FOR UNKNOWN INDICATION
  2. ATORVASTATINE [Concomitant]
     Active Substance: ATORVASTATIN
     Indication: PRODUCT USED FOR UNKNOWN INDICATION
  3. MIRTAZAPINE. [Concomitant]
     Active Substance: MIRTAZAPINE
     Indication: PRODUCT USED FOR UNKNOWN INDICATION
  4. MESALAZINE [Concomitant]
     Active Substance: MESALAMINE
     Indication: PRODUCT USED FOR UNKNOWN INDICATION
  5. IRBESARTAN. [Concomitant]
     Active Substance: IRBESARTAN
     Indication: PRODUCT USED FOR UNKNOWN INDICATION
  6. ACETYLSALICYLIC ACID [Concomitant]
     Active Substance: ASPIRIN
     Indication: PRODUCT USED FOR UNKNOWN INDICATION
  7. KALIUMCHLORIDE [Concomitant]
     Indication: PRODUCT USED FOR UNKNOWN INDICATION
  8. LEVOTHYROXINE. [Concomitant]
     Active Substance: LEVOTHYROXINE
     Indication: PRODUCT USED FOR UNKNOWN INDICATION
  9. ADALIMUMAB [Suspect]
     Active Substance: ADALIMUMAB
     Indication: COLITIS ULCERATIVE
     Route: 058

REACTIONS (1)
  - Pemphigoid [Recovered/Resolved]
